FAERS Safety Report 23826009 (Version 1)
Quarter: 2024Q2

REPORT INFORMATION
  Report Type: Spontaneous
  Country: US (occurrence: US)
  Receive Date: 20240507
  Receipt Date: 20240507
  Transmission Date: 20240716
  Serious: No
  Sender: FDA-Public Use
  Company Number: US-UCBSA-2024004858

PATIENT
  Age: 24 Year
  Sex: Male

DRUGS (5)
  1. CERTOLIZUMAB PEGOL [Suspect]
     Active Substance: CERTOLIZUMAB PEGOL
     Indication: Orofacial granulomatosis
     Dosage: INJECTIONS 400 MG SUBCUTANEOUSLY TO THE THIGH EVERY 2 WEEKS
     Route: 058
  2. CERTOLIZUMAB PEGOL [Suspect]
     Active Substance: CERTOLIZUMAB PEGOL
     Indication: Off label use
     Dosage: SPLIT BIWEEKLY 400 MG INJECTION INTO INTRALESIONAL INJECTIONS OF 200 MG TO LOWER LIP AND SUBCUTANEOU
  3. CERTOLIZUMAB PEGOL [Suspect]
     Active Substance: CERTOLIZUMAB PEGOL
     Dosage: 400 MILLIGRAM BIWEEKLY INJECTIONS TO THE THIGH ONLY
     Route: 058
  4. ZINC [Concomitant]
     Active Substance: PYRITHIONE ZINC\ZINC\ZINC CHLORIDE
     Indication: Orofacial granulomatosis
     Dosage: DOSE UNKNOWN, DAILY AS NEEDED
  5. BUDESONIDE [Concomitant]
     Active Substance: BUDESONIDE
     Indication: Orofacial granulomatosis
     Dosage: DOSE UNKNOWN, DAILY AS NEEDED
     Route: 061

REACTIONS (2)
  - Drug effective for unapproved indication [Unknown]
  - Off label use [Unknown]
